FAERS Safety Report 4450880-9 (Version None)
Quarter: 2004Q3

REPORT INFORMATION
  Report Type: 
  Country: None (occurrence: None)
  Receive Date: 20040916
  Receipt Date: 20011016
  Transmission Date: 20050211
  Serious: Yes (Other)
  Sender: FDA-Public Use
  Company Number: US-BRISTOL-MYERS SQUIBB COMPANY-11540861

PATIENT
  Age: 71 Year
  Sex: Female

DRUGS (8)
  1. STADOL [Suspect]
     Route: 045
  2. STADOL [Suspect]
     Route: 042
  3. LORCET-HD [Concomitant]
  4. LORTAB [Concomitant]
  5. PERCOCET [Concomitant]
  6. SOMA [Concomitant]
  7. XANAX [Concomitant]
  8. DESYREL [Concomitant]

REACTIONS (1)
  - DEPENDENCE [None]
